FAERS Safety Report 23561099 (Version 3)
Quarter: 2024Q2

REPORT INFORMATION
  Report Type: Spontaneous
  Country: CA (occurrence: CA)
  Receive Date: 20240224
  Receipt Date: 20240517
  Transmission Date: 20240716
  Serious: Yes (Other)
  Sender: FDA-Public Use
  Company Number: CA-CELLTRION INC.-2024CA004633

PATIENT

DRUGS (4)
  1. INFLECTRA [Suspect]
     Active Substance: INFLIXIMAB-DYYB
     Indication: Crohn^s disease
     Dosage: 350 MG, WEEKS 0,2,6 THEN Q (EVERY) 8 WEEKS
     Route: 042
     Dates: start: 20240131
  2. INFLECTRA [Suspect]
     Active Substance: INFLIXIMAB-DYYB
     Dosage: 350 MG, WEEKS 0,2,6 THEN Q (EVERY) 8 WEEKS (WEEK 2)
     Route: 042
     Dates: start: 20240214
  3. INFLECTRA [Suspect]
     Active Substance: INFLIXIMAB-DYYB
     Dosage: 425 MG, EVERY 8 WEEK (WEEK 6)
     Route: 042
     Dates: start: 20240313
  4. INFLECTRA [Suspect]
     Active Substance: INFLIXIMAB-DYYB
     Dosage: 425 MG, EVERY 8 WEEK (425MG AFTER 8 WEEKS)
     Route: 042
     Dates: start: 20240508

REACTIONS (7)
  - Rheumatoid arthritis [Unknown]
  - Hypertension [Recovering/Resolving]
  - Aphthous ulcer [Not Recovered/Not Resolved]
  - Arthralgia [Not Recovered/Not Resolved]
  - Erythema nodosum [Recovered/Resolved]
  - Feeling abnormal [Unknown]
  - Off label use [Unknown]

NARRATIVE: CASE EVENT DATE: 20240131
